FAERS Safety Report 8134895-5 (Version None)
Quarter: 2012Q1

REPORT INFORMATION
  Report Type: 
  Country: None (occurrence: None)
  Receive Date: 20120214
  Receipt Date: 20120202
  Transmission Date: 20120608
  Serious: Yes (Other)
  Sender: FDA-Public Use
  Company Number: US-SANOFI-AVENTIS-2012SA007454

PATIENT
  Age: 81 Year
  Sex: Male

DRUGS (4)
  1. LANTUS [Suspect]
     Dosage: DOSE:40 UNIT(S)
     Route: 058
  2. SOLOSTAR [Suspect]
  3. VICTOZA [Concomitant]
  4. NOVOLOG [Concomitant]

REACTIONS (1)
  - DEMENTIA [None]
